FAERS Safety Report 6783636-2 (Version None)
Quarter: 2010Q2

REPORT INFORMATION
  Report Type: 
  Country: None (occurrence: None)
  Receive Date: 20100622
  Receipt Date: 20100611
  Transmission Date: 20101027
  Serious: Yes (Other)
  Sender: FDA-Public Use
  Company Number: NL-BAXTER-2010BH006899

PATIENT
  Age: 65 Year
  Sex: Female

DRUGS (32)
  1. GAMMAGARD LIQUID [Suspect]
     Indication: CHRONIC INFLAMMATORY DEMYELINATING POLYRADICULONEUROPATHY
     Route: 065
     Dates: start: 20100305, end: 20100305
  2. GAMMAGARD LIQUID [Suspect]
     Indication: OFF LABEL USE
     Route: 065
     Dates: start: 20100305, end: 20100305
  3. GAMMAGARD LIQUID [Suspect]
     Route: 065
     Dates: start: 20091125, end: 20091125
  4. GAMMAGARD LIQUID [Suspect]
     Route: 065
     Dates: start: 20091125, end: 20091125
  5. GAMMAGARD LIQUID [Suspect]
     Route: 065
     Dates: start: 20091125, end: 20091125
  6. GAMMAGARD LIQUID [Suspect]
     Route: 065
     Dates: start: 20091125, end: 20091125
  7. GAMMAGARD LIQUID [Suspect]
     Route: 065
     Dates: start: 20091209, end: 20091209
  8. GAMMAGARD LIQUID [Suspect]
     Route: 065
     Dates: start: 20091209, end: 20091209
  9. GAMMAGARD LIQUID [Suspect]
     Route: 065
     Dates: start: 20091209, end: 20091209
  10. GAMMAGARD LIQUID [Suspect]
     Route: 065
     Dates: start: 20091209, end: 20091209
  11. GAMMAGARD LIQUID [Suspect]
     Route: 065
     Dates: start: 20091223, end: 20091223
  12. GAMMAGARD LIQUID [Suspect]
     Route: 065
     Dates: start: 20091223, end: 20091223
  13. GAMMAGARD LIQUID [Suspect]
     Route: 065
     Dates: start: 20091223, end: 20091223
  14. GAMMAGARD LIQUID [Suspect]
     Route: 065
     Dates: start: 20091223, end: 20091223
  15. GAMMAGARD LIQUID [Suspect]
     Route: 065
     Dates: start: 20100108, end: 20100108
  16. GAMMAGARD LIQUID [Suspect]
     Route: 065
     Dates: start: 20100108, end: 20100108
  17. GAMMAGARD LIQUID [Suspect]
     Route: 065
     Dates: start: 20100108, end: 20100108
  18. GAMMAGARD LIQUID [Suspect]
     Route: 065
     Dates: start: 20100108, end: 20100108
  19. GAMMAGARD LIQUID [Suspect]
     Route: 065
     Dates: start: 20100120, end: 20100120
  20. GAMMAGARD LIQUID [Suspect]
     Route: 065
     Dates: start: 20100120, end: 20100120
  21. GAMMAGARD LIQUID [Suspect]
     Route: 065
     Dates: start: 20100120, end: 20100120
  22. GAMMAGARD LIQUID [Suspect]
     Route: 065
     Dates: start: 20100120, end: 20100120
  23. GAMMAGARD LIQUID [Suspect]
     Route: 065
     Dates: start: 20100203, end: 20100203
  24. GAMMAGARD LIQUID [Suspect]
     Route: 065
     Dates: start: 20100203, end: 20100203
  25. GAMMAGARD LIQUID [Suspect]
     Route: 065
     Dates: start: 20100203, end: 20100203
  26. GAMMAGARD LIQUID [Suspect]
     Route: 065
     Dates: start: 20100203, end: 20100203
  27. GAMMAGARD LIQUID [Suspect]
     Route: 065
     Dates: start: 20100218, end: 20100218
  28. GAMMAGARD LIQUID [Suspect]
     Route: 065
     Dates: start: 20100218, end: 20100218
  29. GAMMAGARD LIQUID [Suspect]
     Route: 065
     Dates: start: 20100218, end: 20100218
  30. GAMMAGARD LIQUID [Suspect]
     Route: 065
     Dates: start: 20100218, end: 20100218
  31. SODIUM CHLORIDE 0.9% IN PLASTIC CONTAINER [Suspect]
     Indication: DRUG USE FOR UNKNOWN INDICATION
     Route: 065
     Dates: start: 20100305, end: 20100305
  32. PREDNISONE [Suspect]
     Indication: DRUG USE FOR UNKNOWN INDICATION
     Route: 065

REACTIONS (3)
  - ABNORMAL DREAMS [None]
  - HALLUCINATION [None]
  - SLEEP DISORDER [None]
